FAERS Safety Report 18446996 (Version 1)
Quarter: 2020Q4

REPORT INFORMATION
  Report Type: Spontaneous
  Country: IE (occurrence: IE)
  Receive Date: 20201030
  Receipt Date: 20201030
  Transmission Date: 20210114
  Serious: Yes (Other)
  Sender: FDA-Public Use
  Company Number: IE-ALLERGAN-2041339US

PATIENT
  Sex: Female

DRUGS (3)
  1. ANHYDROUS LEVOTHYROXINE SODIUM, LEVOTHYROXINE [Concomitant]
     Indication: HYPOTHYROIDISM
     Dosage: 25 ?G, Q WEEK
  2. LATANOPROST. [Suspect]
     Active Substance: LATANOPROST
     Indication: PRODUCT USED FOR UNKNOWN INDICATION
     Dosage: UNK, QD
     Route: 047
  3. THYROID POWDER UNK [Suspect]
     Active Substance: THYROID, UNSPECIFIED
     Indication: HYPOTHYROIDISM
     Dosage: 30 MG, Q12H
     Route: 048
     Dates: start: 20200615, end: 20200815

REACTIONS (2)
  - Product quality issue [Unknown]
  - Thyroid function test abnormal [Unknown]
